FAERS Safety Report 11859380 (Version 3)
Quarter: 2016Q1

REPORT INFORMATION
  Report Type: Report from Study
  Country: DE (occurrence: DE)
  Receive Date: 20151221
  Receipt Date: 20160108
  Transmission Date: 20160526
  Serious: Yes (Hospitalization, Other)
  Sender: FDA-Public Use
  Company Number: DE-BIOGEN-2015BI119419

PATIENT
  Age: 52 Year
  Sex: Female
  Weight: 63 kg

DRUGS (27)
  1. NACL [Concomitant]
     Active Substance: SODIUM CHLORIDE
  2. TYSABRI [Suspect]
     Active Substance: NATALIZUMAB
     Indication: MULTIPLE SCLEROSIS
     Route: 042
     Dates: start: 20070430, end: 201508
  3. MODAFINIL. [Concomitant]
     Active Substance: MODAFINIL
     Dates: start: 20150414
  4. TYSABRI [Suspect]
     Active Substance: NATALIZUMAB
     Dates: end: 20150818
  5. NOVALGIN [Concomitant]
     Active Substance: METAMIZOLE SODIUM
  6. PIPAMPERON [Concomitant]
     Active Substance: PIPAMPERONE HYDROCHLORIDE
  7. CLEXANE [Concomitant]
     Active Substance: ENOXAPARIN SODIUM
  8. OXCARBAZEPINE. [Concomitant]
     Active Substance: OXCARBAZEPINE
     Dates: start: 20081125
  9. LARIAM [Concomitant]
     Active Substance: MEFLOQUINE HYDROCHLORIDE
  10. TAVOR EXPEDIT [Concomitant]
  11. PALEXIA [Concomitant]
     Active Substance: TAPENTADOL HYDROCHLORIDE
  12. L-THYROXIN [Concomitant]
     Active Substance: LEVOTHYROXINE SODIUM
  13. CITALOPRAM [Concomitant]
     Active Substance: CITALOPRAM HYDROBROMIDE
  14. KALIUM VERLA [Concomitant]
  15. TYSABRI [Suspect]
     Active Substance: NATALIZUMAB
     Route: 042
     Dates: start: 20080814, end: 20150730
  16. MIRTAZAPINE. [Concomitant]
     Active Substance: MIRTAZAPINE
  17. SALBUTAMOL [Concomitant]
     Active Substance: ALBUTEROL
  18. RISPERDAL [Concomitant]
     Active Substance: RISPERIDONE
  19. NICOTINE PLASTER [Concomitant]
  20. XUSAL [Concomitant]
     Active Substance: LEVOCETIRIZINE DIHYDROCHLORIDE
  21. GABAPENTIN. [Concomitant]
     Active Substance: GABAPENTIN
  22. PROPRANOLOL [Concomitant]
     Active Substance: PROPRANOLOL\PROPRANOLOL HYDROCHLORIDE
  23. STEROFUNDIN [Concomitant]
  24. BACLOFEN. [Concomitant]
     Active Substance: BACLOFEN
     Dates: start: 20101227
  25. PANTOZOL [Concomitant]
     Active Substance: PANTOPRAZOLE SODIUM
  26. FEMOSTON [Concomitant]
     Active Substance: DYDROGESTERONE\ESTRADIOL
  27. KEPPRA [Concomitant]
     Active Substance: LEVETIRACETAM

REACTIONS (4)
  - Progressive multifocal leukoencephalopathy [Recovered/Resolved with Sequelae]
  - Suicidal ideation [Unknown]
  - Prescribed underdose [Unknown]
  - Immune reconstitution inflammatory syndrome [Unknown]

NARRATIVE: CASE EVENT DATE: 20150817
